FAERS Safety Report 5565077-9 (Version None)
Quarter: 2007Q4

REPORT INFORMATION
  Report Type: 
  Country: None (occurrence: None)
  Receive Date: 20071218
  Receipt Date: 20071210
  Transmission Date: 20080405
  Serious: Yes (Other)
  Sender: FDA-Public Use
  Company Number: HU-ASTRAZENECA-2007AC02450

PATIENT
  Age: 73 Year
  Sex: Female

DRUGS (2)
  1. OMEPRAZOLE [Suspect]
     Indication: GASTROOESOPHAGEAL REFLUX DISEASE
     Route: 048
  2. LANSOPRAZOLE [Suspect]
     Route: 048

REACTIONS (2)
  - ENTEROCHROMAFFIN CELL HYPERPLASIA [None]
  - TUMOUR MARKER INCREASED [None]
